FAERS Safety Report 22260571 (Version 1)
Quarter: 2023Q2

REPORT INFORMATION
  Report Type: Report from Study
  Country: US (occurrence: US)
  Receive Date: 20230427
  Receipt Date: 20230427
  Transmission Date: 20230721
  Serious: Yes (Hospitalization, Other)
  Sender: FDA-Public Use
  Company Number: US-ABBVIE-4744401

PATIENT
  Sex: Male

DRUGS (1)
  1. RINVOQ [Suspect]
     Active Substance: UPADACITINIB
     Indication: Product used for unknown indication
     Route: 048
     Dates: start: 20230221

REACTIONS (4)
  - Nephrolithiasis [Unknown]
  - Acne [Recovering/Resolving]
  - Subcutaneous abscess [Recovering/Resolving]
  - Bladder cyst [Unknown]
